FAERS Safety Report 24712535 (Version 3)
Quarter: 2025Q1

REPORT INFORMATION
  Report Type: Spontaneous
  Country: GB (occurrence: GB)
  Receive Date: 20241209
  Receipt Date: 20250213
  Transmission Date: 20250409
  Serious: Yes (Hospitalization, Other)
  Sender: MYLAN
  Company Number: GB-MYLANLABS-2024M1109373

PATIENT
  Sex: Female

DRUGS (2)
  1. CLOZARIL [Suspect]
     Active Substance: CLOZAPINE
     Indication: Product used for unknown indication
     Route: 048
     Dates: start: 20220126, end: 20241202
  2. CLOZARIL [Suspect]
     Active Substance: CLOZAPINE
     Route: 048
     Dates: end: 20250207

REACTIONS (6)
  - Hospitalisation [Unknown]
  - Muscle disorder [Unknown]
  - Cardiovascular disorder [Unknown]
  - Chest pain [Unknown]
  - Cardiac disorder [Unknown]
  - Troponin increased [Unknown]

NARRATIVE: CASE EVENT DATE: 20250206
